FAERS Safety Report 7427234-6 (Version None)
Quarter: 2011Q2

REPORT INFORMATION
  Report Type: 
  Country: None (occurrence: None)
  Receive Date: 20110420
  Receipt Date: 20110411
  Transmission Date: 20111010
  Serious: No
  Sender: FDA-Public Use
  Company Number: US-PFIZER INC-2011079606

PATIENT
  Sex: Male
  Weight: 87.1 kg

DRUGS (1)
  1. MEDROXYPROGESTERONE [Suspect]
     Indication: CONTRACEPTION
     Dosage: 150 MG, EVERY 3 MONTHS
     Route: 050

REACTIONS (3)
  - NEOPLASM SKIN [None]
  - SCAR [None]
  - SKIN HAEMORRHAGE [None]
